FAERS Safety Report 7531722-1 (Version None)
Quarter: 2011Q2

REPORT INFORMATION
  Report Type: 
  Country: None (occurrence: None)
  Receive Date: 20110608
  Receipt Date: 20110531
  Transmission Date: 20111010
  Serious: Yes (Hospitalization)
  Sender: FDA-Public Use
  Company Number: US-ASTELLAS-2011US002077

PATIENT

DRUGS (4)
  1. VESICARE [Suspect]
     Indication: BLADDER DISORDER
     Dosage: 5 MG, UID/QD
     Route: 048
     Dates: end: 20100701
  2. VESICARE [Suspect]
     Indication: NOCTURIA
  3. LOTENSIN [Concomitant]
     Indication: BLOOD PRESSURE
     Dosage: UNK
     Route: 065
  4. ASPIRIN [Concomitant]
     Indication: PRODUCT USED FOR UNKNOWN INDICATION
     Dosage: 81 MG, UNKNOWN/D
     Route: 065

REACTIONS (3)
  - OFF LABEL USE [None]
  - DRUG INEFFECTIVE [None]
  - SPINAL FUSION SURGERY [None]
